FAERS Safety Report 8910163 (Version 2)
Quarter: 2013Q2

REPORT INFORMATION
  Report Type: Spontaneous
  Country: US (occurrence: US)
  Receive Date: 20121115
  Receipt Date: 20130514
  Transmission Date: 20140414
  Serious: No
  Sender: FDA-Public Use
  Company Number: US-009507513-1211USA003279

PATIENT
  Age: 12 Year
  Sex: 0

DRUGS (1)
  1. DULERA [Suspect]
     Route: 055

REACTIONS (1)
  - Agitation [Recovering/Resolving]
